FAERS Safety Report 10246430 (Version 1)
Quarter: 2014Q2

REPORT INFORMATION
  Report Type: Spontaneous
  Country: MX (occurrence: None)
  Receive Date: 20140617
  Receipt Date: 20140617
  Transmission Date: 20141212
  Serious: Yes (Disabling, Other)
  Sender: FDA-Public Use
  Company Number: None

PATIENT
  Age: 46 Year
  Sex: Female
  Weight: 55 kg

DRUGS (1)
  1. GOSERELINE [Suspect]

REACTIONS (13)
  - Depression [None]
  - Hot flush [None]
  - Dysphagia [None]
  - Nausea [None]
  - Anxiety [None]
  - Libido decreased [None]
  - Vulvovaginal dryness [None]
  - Dyspnoea [None]
  - Disturbance in attention [None]
  - Suicidal ideation [None]
  - Chest pain [None]
  - Insomnia [None]
  - Quality of life decreased [None]
